FAERS Safety Report 16376748 (Version 2)
Quarter: 2019Q2

REPORT INFORMATION
  Report Type: Report from Study
  Country: NL (occurrence: NL)
  Receive Date: 20190531
  Receipt Date: 20190624
  Transmission Date: 20190711
  Serious: Yes (Hospitalization, Other)
  Sender: FDA-Public Use
  Company Number: NL-IPSEN BIOPHARMACEUTICALS, INC.-2019-08855

PATIENT
  Age: 74 Year
  Sex: Female

DRUGS (1)
  1. SOMATULINE AUTOSOLUTION 120MG [Suspect]
     Active Substance: LANREOTIDE ACETATE
     Indication: NEUROENDOCRINE TUMOUR
     Route: 058
     Dates: start: 20150428

REACTIONS (6)
  - Nausea [Unknown]
  - Diarrhoea [Unknown]
  - Hypophagia [Unknown]
  - Neoplasm progression [Unknown]
  - Off label use [Unknown]
  - Dehydration [Unknown]

NARRATIVE: CASE EVENT DATE: 20190528
